FAERS Safety Report 13857471 (Version 1)
Quarter: 2017Q3

REPORT INFORMATION
  Report Type: Spontaneous
  Country: US (occurrence: US)
  Receive Date: 20170810
  Receipt Date: 20170810
  Transmission Date: 20171127
  Serious: No
  Sender: FDA-Public Use
  Company Number: PHEH2017US024854

PATIENT
  Sex: Female

DRUGS (3)
  1. PROCARDIA XL [Concomitant]
     Active Substance: NIFEDIPINE
     Indication: PRODUCT USED FOR UNKNOWN INDICATION
     Route: 065
  2. RECLAST [Suspect]
     Active Substance: ZOLEDRONIC ACID
     Indication: OSTEOPOROSIS
     Route: 065
     Dates: start: 20170801
  3. TRAMADOL. [Concomitant]
     Active Substance: TRAMADOL
     Indication: SCLERODERMA
     Route: 065

REACTIONS (1)
  - Malaise [Unknown]
